FAERS Safety Report 18448500 (Version 2)
Quarter: 2020Q4

REPORT INFORMATION
  Report Type: Spontaneous
  Country: AT (occurrence: AT)
  Receive Date: 20201030
  Receipt Date: 20201106
  Transmission Date: 20210114
  Serious: Yes (Hospitalization)
  Sender: FDA-Public Use
  Company Number: AT-JNJFOC-20201041527

PATIENT
  Age: 79 Year
  Sex: Female

DRUGS (6)
  1. FUROHEXAL [FUROSEMIDE] [Concomitant]
     Dosage: 40 MG, QD
  2. THYREX [Concomitant]
     Active Substance: LEVOTHYROXINE SODIUM
     Dosage: 50 UG, OM
  3. XARELTO [Suspect]
     Active Substance: RIVAROXABAN
     Indication: ATRIAL FIBRILLATION
     Dosage: 20 MG, OM
     Route: 048
     Dates: start: 2018
  4. ATORVADIVID [Concomitant]
     Dosage: 20 MG, HS
  5. BLOPRESS [Concomitant]
     Active Substance: CANDESARTAN CILEXETIL
     Dosage: 8 MG, BID
  6. NOMEXOR [Concomitant]
     Active Substance: NEBIVOLOL HYDROCHLORIDE
     Dosage: 5 MG, BID

REACTIONS (5)
  - Cerebral haemorrhage [Unknown]
  - Hypertension [Unknown]
  - Hemiplegia [Unknown]
  - Basal ganglia haemorrhage [Unknown]
  - Speech disorder [Unknown]

NARRATIVE: CASE EVENT DATE: 20201020
